FAERS Safety Report 5081687-X (Version None)
Quarter: 2006Q3

REPORT INFORMATION
  Report Type: 
  Country: None (occurrence: None)
  Receive Date: 20060816
  Receipt Date: 20060811
  Transmission Date: 20061208
  Serious: Yes (Hospitalization)
  Sender: FDA-Public Use
  Company Number: US-BOEHRINGER INGELHEIM PHARMACEUTICALS, INC.-2006-BP-09377BP

PATIENT
  Age: 68 Year
  Sex: Female

DRUGS (6)
  1. COMBIVENT [Suspect]
     Indication: CHRONIC OBSTRUCTIVE PULMONARY DISEASE
     Route: 055
     Dates: start: 20051201
  2. ADVAIR DISKUS 100/50 [Concomitant]
  3. IMDUR [Concomitant]
  4. LISINOPRIL [Concomitant]
  5. PLAVIX [Concomitant]
  6. ASPIRIN [Concomitant]

REACTIONS (2)
  - MYOCARDIAL INFARCTION [None]
  - PNEUMONIA [None]
